FAERS Safety Report 6672306-7 (Version None)
Quarter: 2010Q2

REPORT INFORMATION
  Report Type: 
  Country: None (occurrence: None)
  Receive Date: 20100408
  Receipt Date: 20100324
  Transmission Date: 20101027
  Serious: No
  Sender: FDA-Public Use
  Company Number: US-JNJFOC-20070802343

PATIENT
  Sex: Male
  Weight: 113.4 kg

DRUGS (6)
  1. DURAGESIC-100 [Suspect]
     Indication: PAIN
     Route: 062
  2. DURAGESIC-100 [Suspect]
     Route: 062
  3. SYNTHROID [Concomitant]
     Indication: THYROID DISORDER
     Route: 048
  4. CYTOMEL [Concomitant]
     Indication: THYROID DISORDER
     Route: 048
  5. PREVACID [Concomitant]
     Indication: GASTROOESOPHAGEAL REFLUX DISEASE
     Route: 048
  6. RHINOCORT [Concomitant]
     Indication: SEASONAL ALLERGY
     Dosage: EACH NOSTRIL
     Route: 045

REACTIONS (2)
  - INGROWN HAIR [None]
  - WRONG TECHNIQUE IN DRUG USAGE PROCESS [None]
